FAERS Safety Report 8591919-9 (Version None)
Quarter: 2012Q3

REPORT INFORMATION
  Report Type: 
  Country: None (occurrence: None)
  Receive Date: 20120814
  Receipt Date: 20120808
  Transmission Date: 20120928
  Serious: Yes (Other)
  Sender: FDA-Public Use
  Company Number: JP-GENZYME-FLUD-1001533

PATIENT
  Age: 10 Year
  Sex: Male

DRUGS (1)
  1. FLUDARA [Suspect]
     Indication: BONE MARROW CONDITIONING REGIMEN
     Dosage: 30 MG/M2, FOR 4 TIMES
     Route: 065

REACTIONS (4)
  - VENOOCCLUSIVE LIVER DISEASE [None]
  - ACUTE GRAFT VERSUS HOST DISEASE [None]
  - CYTOMEGALOVIRUS INFECTION [None]
  - VIRAL INFECTION [None]
